FAERS Safety Report 8901359 (Version 1)
Quarter: 2012Q4

REPORT INFORMATION
  Report Type: Report from Study
  Country: GR (occurrence: GR)
  Receive Date: 20121108
  Receipt Date: 20121108
  Transmission Date: 20130627
  Serious: Yes (Other)
  Sender: FDA-Public Use
  Company Number: GR-JNJFOC-20121102572

PATIENT
  Age: 24 Year
  Sex: Female

DRUGS (7)
  1. REMICADE [Suspect]
     Indication: CROHN^S DISEASE
     Dosage: treatment for appoximately 6 years, with increased doses and decreased intervals
     Route: 042
  2. METHOTREXATE [Suspect]
     Indication: CROHN^S DISEASE
  3. HUMIRA [Suspect]
     Indication: CROHN^S DISEASE
  4. CERTOLIZUMAB [Concomitant]
     Indication: CROHN^S DISEASE
     Dosage: for 4 months
  5. CERTOLIZUMAB [Concomitant]
     Indication: CROHN^S DISEASE
     Dosage: at week 0
  6. CERTOLIZUMAB [Concomitant]
     Indication: CROHN^S DISEASE
     Dosage: at week 4
  7. CERTOLIZUMAB [Concomitant]
     Indication: CROHN^S DISEASE
     Dosage: at week 2

REACTIONS (5)
  - Colectomy [Unknown]
  - Drug ineffective [Unknown]
  - Pyrexia [Unknown]
  - Crohn^s disease [Unknown]
  - Duodenal fistula [Unknown]
